FAERS Safety Report 25493872 (Version 1)
Quarter: 2025Q2

REPORT INFORMATION
  Report Type: Spontaneous
  Country: DE (occurrence: DE)
  Receive Date: 20250630
  Receipt Date: 20250630
  Transmission Date: 20250717
  Serious: Yes (Other)
  Sender: HETERO
  Company Number: DE-AMAROX PHARMA-AMR2025DE03445

PATIENT

DRUGS (1)
  1. EMTRICITABINE\TENOFOVIR [Suspect]
     Active Substance: EMTRICITABINE\TENOFOVIR
     Indication: Product used for unknown indication
     Route: 065

REACTIONS (3)
  - Genital burning sensation [Unknown]
  - Paraesthesia [Unknown]
  - Burning sensation [Unknown]
